FAERS Safety Report 13048282 (Version 5)
Quarter: 2018Q1

REPORT INFORMATION
  Report Type: Report from Study
  Country: JP (occurrence: JP)
  Receive Date: 20161220
  Receipt Date: 20180315
  Transmission Date: 20180508
  Serious: Yes (Other)
  Sender: FDA-Public Use
  Company Number: JP-AMGEN-JPNNI2016180278

PATIENT
  Age: 42 Year
  Sex: Male
  Weight: 62 kg

DRUGS (50)
  1. PEGFILGRASTIM [Suspect]
     Active Substance: PEGFILGRASTIM
     Dosage: 3.6 MG, UNK
     Route: 058
     Dates: start: 20161107, end: 20161107
  2. PREDONINE [Suspect]
     Active Substance: PREDNISOLONE
     Dosage: 100 MG, UNK
     Route: 065
     Dates: start: 20161104, end: 20161104
  3. ONCOVIN [Suspect]
     Active Substance: VINCRISTINE SULFATE
     Dosage: 2 MG/M2, UNK
     Route: 041
     Dates: start: 20160812, end: 20160812
  4. BIO-THREE [Concomitant]
     Active Substance: HERBALS
     Indication: COLITIS ULCERATIVE
     Dosage: UNK
     Route: 048
  5. FLUCONAZOLE. [Concomitant]
     Active Substance: FLUCONAZOLE
     Dosage: UNK
     Route: 048
  6. ADRIACIN [Suspect]
     Active Substance: DOXORUBICIN HYDROCHLORIDE
     Indication: NON-HODGKIN^S LYMPHOMA
     Dosage: UNK
     Route: 041
  7. ADRIACIN [Suspect]
     Active Substance: DOXORUBICIN HYDROCHLORIDE
     Dosage: 85 MG, UNK
     Route: 041
     Dates: start: 20160923, end: 20160923
  8. RITUXAN [Suspect]
     Active Substance: RITUXIMAB
     Dosage: 640 MG, UNK
     Route: 041
     Dates: start: 20161014, end: 20161014
  9. PREDONINE [Suspect]
     Active Substance: PREDNISOLONE
     Dosage: 100 MG, UNK
     Route: 065
     Dates: start: 20160902, end: 20160902
  10. ENDOXAN [Suspect]
     Active Substance: CYCLOPHOSPHAMIDE
     Indication: NON-HODGKIN^S LYMPHOMA
     Dosage: UNK
     Route: 041
  11. PREDNISOLONE. [Suspect]
     Active Substance: PREDNISOLONE
     Dosage: 100 MG, UNK
     Route: 048
     Dates: start: 20160903, end: 20160906
  12. LANSOPRAZOLE. [Concomitant]
     Active Substance: LANSOPRAZOLE
     Dosage: UNK
     Route: 048
  13. LEVOFLOXACIN HEMIHYDRATE [Concomitant]
     Active Substance: LEVOFLOXACIN
     Dosage: UNK
     Route: 048
  14. BAYASPIRIN [Concomitant]
     Active Substance: ASPIRIN
     Dosage: UNK
     Route: 048
  15. ADRIACIN [Suspect]
     Active Substance: DOXORUBICIN HYDROCHLORIDE
     Dosage: 85 MG, UNK
     Route: 041
     Dates: start: 20161104, end: 20161104
  16. RITUXAN [Suspect]
     Active Substance: RITUXIMAB
     Indication: NON-HODGKIN^S LYMPHOMA
     Dosage: UNK
     Route: 041
  17. RITUXAN [Suspect]
     Active Substance: RITUXIMAB
     Dosage: 640 MG/M2, UNK
     Route: 041
     Dates: start: 20160812, end: 20160812
  18. ONCOVIN [Suspect]
     Active Substance: VINCRISTINE SULFATE
     Dosage: 2 MG, UNK
     Route: 041
     Dates: start: 20161104, end: 20161104
  19. AZANIN [Concomitant]
     Active Substance: AZATHIOPRINE
     Indication: COLITIS ULCERATIVE
     Dosage: UNK
     Route: 048
  20. PEGFILGRASTIM [Suspect]
     Active Substance: PEGFILGRASTIM
     Dosage: 3.6 MG, UNK
     Route: 058
     Dates: start: 20161017, end: 20161017
  21. PREDONINE [Suspect]
     Active Substance: PREDNISOLONE
     Indication: NON-HODGKIN^S LYMPHOMA
     Dosage: UNK
     Route: 065
  22. ONCOVIN [Suspect]
     Active Substance: VINCRISTINE SULFATE
     Indication: NON-HODGKIN^S LYMPHOMA
     Dosage: UNK
     Route: 041
  23. ENDOXAN [Suspect]
     Active Substance: CYCLOPHOSPHAMIDE
     Dosage: 1280 MG/M2, UNK
     Route: 041
     Dates: start: 20160812, end: 20160812
  24. ENDOXAN [Suspect]
     Active Substance: CYCLOPHOSPHAMIDE
     Dosage: 1280 MG, UNK
     Route: 041
     Dates: start: 20160923, end: 20160923
  25. ENDOXAN [Suspect]
     Active Substance: CYCLOPHOSPHAMIDE
     Dosage: 1280 MG, UNK
     Route: 041
     Dates: start: 20161104, end: 20161104
  26. PREDNISOLONE. [Suspect]
     Active Substance: PREDNISOLONE
     Dosage: UNK
     Route: 048
  27. METHYCOBAL [Concomitant]
     Active Substance: METHYLCOBALAMIN
     Dosage: UNK
     Route: 048
  28. ASACOL [Concomitant]
     Active Substance: MESALAMINE
     Indication: COLITIS ULCERATIVE
     Dosage: UNK
     Route: 048
  29. ADRIACIN [Suspect]
     Active Substance: DOXORUBICIN HYDROCHLORIDE
     Dosage: 85 MG, UNK
     Route: 041
     Dates: start: 20161014, end: 20161014
  30. ONCOVIN [Suspect]
     Active Substance: VINCRISTINE SULFATE
     Dosage: 2 MG, UNK
     Route: 041
     Dates: start: 20160923, end: 20160923
  31. ENDOXAN [Suspect]
     Active Substance: CYCLOPHOSPHAMIDE
     Dosage: 1280 MG, UNK
     Route: 041
     Dates: start: 20160902, end: 20160902
  32. PREDNISOLONE. [Suspect]
     Active Substance: PREDNISOLONE
     Dosage: 100 MG, UNK
     Route: 048
     Dates: start: 20160924, end: 20160927
  33. PREDNISOLONE. [Suspect]
     Active Substance: PREDNISOLONE
     Dosage: 100 MG, UNK
     Route: 048
     Dates: start: 20161015, end: 20161018
  34. PEGFILGRASTIM [Suspect]
     Active Substance: PEGFILGRASTIM
     Dosage: 3.6 MG, UNK
     Route: 058
     Dates: start: 20160926, end: 20160926
  35. ADRIACIN [Suspect]
     Active Substance: DOXORUBICIN HYDROCHLORIDE
     Dosage: 85 MG, UNK
     Route: 041
     Dates: start: 20160812, end: 20160812
  36. ADRIACIN [Suspect]
     Active Substance: DOXORUBICIN HYDROCHLORIDE
     Dosage: 85 MG, UNK
     Route: 041
     Dates: start: 20160902, end: 20160902
  37. PREDONINE [Suspect]
     Active Substance: PREDNISOLONE
     Dosage: 100 MG, UNK
     Route: 065
     Dates: start: 20160923, end: 20160923
  38. ONCOVIN [Suspect]
     Active Substance: VINCRISTINE SULFATE
     Dosage: 2 MG, UNK
     Route: 041
     Dates: start: 20160902, end: 20160902
  39. ONCOVIN [Suspect]
     Active Substance: VINCRISTINE SULFATE
     Dosage: 2 MG, UNK
     Route: 041
     Dates: start: 20161014, end: 20161014
  40. PREDNISOLONE. [Suspect]
     Active Substance: PREDNISOLONE
     Dosage: 100 MG, UNK
     Route: 048
     Dates: start: 20161105, end: 20161108
  41. PEGFILGRASTIM [Suspect]
     Active Substance: PEGFILGRASTIM
     Indication: COLONY STIMULATING FACTOR PROPHYLAXIS
     Dosage: 3.6 MG, UNK
     Route: 058
     Dates: start: 20160905, end: 20160905
  42. RITUXAN [Suspect]
     Active Substance: RITUXIMAB
     Dosage: 640 MG, UNK
     Route: 041
     Dates: start: 20160902, end: 20160902
  43. RITUXAN [Suspect]
     Active Substance: RITUXIMAB
     Dosage: 640 MG, UNK
     Route: 041
     Dates: start: 20160923, end: 20160923
  44. RITUXAN [Suspect]
     Active Substance: RITUXIMAB
     Dosage: 640 MG, UNK
     Route: 041
     Dates: start: 20161104, end: 20161104
  45. PREDONINE [Suspect]
     Active Substance: PREDNISOLONE
     Dosage: 100 MG/M2, UNK
     Route: 065
     Dates: start: 20160812, end: 20160812
  46. PREDONINE [Suspect]
     Active Substance: PREDNISOLONE
     Dosage: 100 MG, UNK
     Route: 065
     Dates: start: 20161014, end: 20161014
  47. ENDOXAN [Suspect]
     Active Substance: CYCLOPHOSPHAMIDE
     Dosage: 1280 MG, UNK
     Route: 041
     Dates: start: 20161014, end: 20161014
  48. PREDNISOLONE. [Suspect]
     Active Substance: PREDNISOLONE
     Indication: NON-HODGKIN^S LYMPHOMA
     Dosage: UNK
     Route: 048
  49. FERRUM [Concomitant]
     Active Substance: FERROUS FUMARATE
     Dosage: UNK
     Route: 048
  50. BAKTAR [Concomitant]
     Active Substance: SULFAMETHOXAZOLE\TRIMETHOPRIM
     Dosage: UNK
     Route: 048

REACTIONS (1)
  - Febrile neutropenia [Recovered/Resolved]

NARRATIVE: CASE EVENT DATE: 201610
